FAERS Safety Report 8808799 (Version 2)
Quarter: 2012Q4

REPORT INFORMATION
  Report Type: 
  Country: US (occurrence: US)
  Receive Date: 20120926
  Receipt Date: 20121231
  Transmission Date: 20130627
  Serious: Yes (Death)
  Sender: FDA-Public Use
  Company Number: US-BRISTOL-MYERS SQUIBB COMPANY-16977753

PATIENT
  Age: 75 Year
  Sex: Male

DRUGS (1)
  1. BARACLUDE [Suspect]
     Dates: start: 20110531, end: 20120812

REACTIONS (1)
  - Death [Fatal]
